FAERS Safety Report 7583694-1 (Version None)
Quarter: 2011Q2

REPORT INFORMATION
  Report Type: 
  Country: None (occurrence: None)
  Receive Date: 20110630
  Receipt Date: 20110629
  Transmission Date: 20111010
  Serious: Yes (Other)
  Sender: FDA-Public Use
  Company Number: B0719031A

PATIENT
  Sex: Female
  Weight: 55 kg

DRUGS (3)
  1. LUTERAN [Concomitant]
     Indication: MENOPAUSE
     Route: 048
  2. VALACYCLOVIR HYDROCHLORIDE [Suspect]
     Indication: ORAL HERPES
     Dosage: 500MG PER DAY
     Route: 048
     Dates: start: 20110102
  3. DESLORATADINE [Concomitant]
     Indication: URTICARIA

REACTIONS (14)
  - ERYTHEMA NODOSUM [None]
  - OEDEMA PERIPHERAL [None]
  - HENOCH-SCHONLEIN PURPURA [None]
  - ARTHRALGIA [None]
  - ABDOMINAL PAIN [None]
  - ORAL HERPES [None]
  - CONDITION AGGRAVATED [None]
  - PURPURA [None]
  - PETECHIAE [None]
  - URINARY TRACT INFECTION ENTEROCOCCAL [None]
  - ESCHERICHIA TEST POSITIVE [None]
  - POLYARTHRITIS [None]
  - BLOOD CREATININE INCREASED [None]
  - ANTI-HBS ANTIBODY POSITIVE [None]
